FAERS Safety Report 11557552 (Version 3)
Quarter: 2017Q2

REPORT INFORMATION
  Report Type: Spontaneous
  Country: CA (occurrence: CA)
  Receive Date: 20150926
  Receipt Date: 20170411
  Transmission Date: 20170829
  Serious: Yes (Hospitalization, Other)
  Sender: FDA-Public Use
  Company Number: CA-009507513-1509CAN012833

PATIENT
  Age: 61 Year
  Sex: Female

DRUGS (2)
  1. SINGULAIR [Suspect]
     Active Substance: MONTELUKAST SODIUM
     Indication: ASTHMA
     Dosage: 10 MG PO QHS/DAILY
     Route: 048
     Dates: start: 1999, end: 2015
  2. SINGULAIR [Suspect]
     Active Substance: MONTELUKAST SODIUM
     Dosage: 10 MG PO QHS/DAILY
     Route: 048
     Dates: start: 2015

REACTIONS (15)
  - Back pain [Recovering/Resolving]
  - Oropharyngeal pain [Unknown]
  - Viral upper respiratory tract infection [Unknown]
  - Migraine [Recovering/Resolving]
  - Adverse event [Recovering/Resolving]
  - Peripheral embolism [Recovering/Resolving]
  - Immunodeficiency [Unknown]
  - Throat irritation [Unknown]
  - Cough [Unknown]
  - Abdominal discomfort [Unknown]
  - Road traffic accident [Recovering/Resolving]
  - Cardiac failure [Recovering/Resolving]
  - Seizure [Recovering/Resolving]
  - Amnesia [Recovering/Resolving]
  - Diarrhoea [Unknown]

NARRATIVE: CASE EVENT DATE: 2015
